FAERS Safety Report 11060936 (Version 2)
Quarter: 2015Q2

REPORT INFORMATION
  Report Type: Spontaneous
  Country: RU (occurrence: RU)
  Receive Date: 20150424
  Receipt Date: 20150525
  Transmission Date: 20150821
  Serious: Yes (Other)
  Sender: FDA-Public Use
  Company Number: RU-AMGEN-RUSSP2015037881

PATIENT
  Age: 51 Year
  Sex: Female

DRUGS (5)
  1. CALCITONIN [Concomitant]
     Active Substance: CALCITONIN
  2. ALENDRONATE [Concomitant]
     Active Substance: ALENDRONATE SODIUM
     Dosage: K70 MG, QWK
  3. PROLIA [Suspect]
     Active Substance: DENOSUMAB
     Indication: OSTEOPOROSIS POSTMENOPAUSAL
     Dosage: 60 MG, Q6MO
     Route: 058
     Dates: start: 201301
  4. IBANDRONATE [Concomitant]
     Active Substance: IBANDRONATE SODIUM
     Dosage: 3 MG, Q3MO
  5. CALCIUM + VITAMIN D3 [Concomitant]

REACTIONS (2)
  - Osteonecrosis of jaw [Unknown]
  - Periodontal disease [Unknown]

NARRATIVE: CASE EVENT DATE: 201310
